FAERS Safety Report 4277975-7 (Version None)
Quarter: 2004Q1

REPORT INFORMATION
  Report Type: 
  Country: None (occurrence: None)
  Receive Date: 20040121
  Receipt Date: 20040115
  Transmission Date: 20041129
  Serious: Yes (Hospitalization)
  Sender: FDA-Public Use
  Company Number: DEWYE512915JAN04

PATIENT
  Sex: Male

DRUGS (8)
  1. RAPAMUNE [Suspect]
     Dosage: 1 OR 2 MG; ORAL
     Route: 048
  2. CYMEVENE (GANCICLOVIR SODIUM,, 0) [Suspect]
     Dosage: THERAPEUTIC DOSIS; ORAL
     Route: 048
  3. PREDNISONE [Suspect]
     Dosage: THERAPEUTIC DOSIS; ORAL
     Route: 048
  4. DIFLUCAN [Suspect]
     Dosage: THERAPEUTIC DOSIS; ORAL
     Route: 048
  5. GRUENCEF (CEFADROXIL, ,0) [Suspect]
     Dosage: THERAPEUTIC DOSIS; ORAL
     Route: 048
  6. RULID (ROXITHROMYCIN, ,0) [Suspect]
     Dosage: THERAPEUTIC DOSIS; ORAL
     Route: 048
  7. CLINDAMYCIN HCL [Suspect]
     Dosage: THERAPEUTIC DOSIS; ORAL
     Route: 048
  8. VANCOMYCIN [Suspect]
     Dosage: THERAPEUTIC DOSIS; ORAL
     Route: 048

REACTIONS (1)
  - RENAL FAILURE [None]
